FAERS Safety Report 10398229 (Version 2)
Quarter: 2014Q3

REPORT INFORMATION
  Report Type: Spontaneous
  Country: IT (occurrence: None)
  Receive Date: 20140818
  Receipt Date: 20140818
  Transmission Date: 20150326
  Serious: Yes (Death)
  Sender: FDA-Public Use
  Company Number: IT-MDCO-14-00132

PATIENT
  Age: 77 Year
  Sex: Female
  Weight: 75 kg

DRUGS (9)
  1. BRILIQUE [Suspect]
     Active Substance: TICAGRELOR
     Indication: ACUTE CORONARY SYNDROME
     Route: 048
     Dates: start: 20140321, end: 20140403
  2. AMIODARONE (AMIODARONE) [Concomitant]
     Active Substance: AMIODARONE
  3. TRINITRINA [Concomitant]
  4. ANGIOX [Suspect]
     Active Substance: BIVALIRUDIN
     Indication: CORONARY ANGIOPLASTY
     Route: 042
     Dates: start: 20140401, end: 20140401
  5. LASIX [Concomitant]
     Active Substance: FUROSEMIDE
  6. FLECTADOL [Concomitant]
     Active Substance: ACETAMINOPHEN\CHLORZOXAZONE
  7. CARDIOASPIRIN (ACETYLSALICYLIC ACID) [Concomitant]
     Active Substance: ASPIRIN
  8. CLEXANE (ENOXAPARIN SODIUM) [Concomitant]
     Active Substance: ENOXAPARIN SODIUM
  9. CONGESCOR (BISOPROLOL) [Concomitant]

REACTIONS (3)
  - Haemorrhage intracranial [None]
  - Peripheral embolism [None]
  - Cardiac arrest [None]

NARRATIVE: CASE EVENT DATE: 201404
